FAERS Safety Report 13539277 (Version 1)
Quarter: 2017Q2

REPORT INFORMATION
  Report Type: Spontaneous
  Country: US (occurrence: US)
  Receive Date: 20170512
  Receipt Date: 20170512
  Transmission Date: 20170830
  Serious: No
  Sender: FDA-Public Use
  Company Number: US-PFIZER INC-2017200001

PATIENT
  Age: 63 Year
  Sex: Female
  Weight: 55.34 kg

DRUGS (5)
  1. PREMPRO [Concomitant]
     Active Substance: ESTROGENS, CONJUGATED\MEDROXYPROGESTERONE ACETATE
     Indication: HOT FLUSH
     Dosage: 0.3MG/1.5 MG, ONCE A DAY
  2. LYRICA [Suspect]
     Active Substance: PREGABALIN
     Dosage: 100 MG, THREE TIMES A DAY
     Dates: start: 20170503
  3. TRIAMTERENE. [Concomitant]
     Active Substance: TRIAMTERENE
     Indication: HYPERTENSION
     Dosage: 37.5 MG, ONCE A DAY IN THE MORNING
  4. LYRICA [Suspect]
     Active Substance: PREGABALIN
     Indication: POST HERPETIC NEURALGIA
     Dosage: 50 MG, THREE TIMES DAILY (EVERY EIGHT HOURS)
     Route: 048
     Dates: start: 20170425
  5. SIMVASTATIN. [Concomitant]
     Active Substance: SIMVASTATIN
     Indication: BLOOD CHOLESTEROL INCREASED
     Dosage: 20 MG, ONCE A DAY AT NIGHT

REACTIONS (7)
  - Vision blurred [Recovering/Resolving]
  - Fatigue [Recovering/Resolving]
  - Myalgia [Recovered/Resolved]
  - Weight increased [Unknown]
  - Asthenopia [Recovering/Resolving]
  - Somnolence [Recovering/Resolving]
  - Hunger [Recovering/Resolving]

NARRATIVE: CASE EVENT DATE: 20170425
